FAERS Safety Report 13554215 (Version 10)
Quarter: 2017Q4

REPORT INFORMATION
  Report Type: Spontaneous
  Country: GB (occurrence: GB)
  Receive Date: 20170517
  Receipt Date: 20171103
  Transmission Date: 20180320
  Serious: Yes (Hospitalization)
  Sender: FDA-Public Use
  Company Number: GB-PFIZER INC-2017211632

PATIENT
  Age: 15 Year
  Sex: Female
  Weight: 66 kg

DRUGS (9)
  1. LYRICA [Suspect]
     Active Substance: PREGABALIN
     Indication: POST-TRAUMATIC STRESS DISORDER
     Dosage: 150 MG, 2X/DAY
     Route: 048
     Dates: start: 2017
  2. RISPERIDONE. [Suspect]
     Active Substance: RISPERIDONE
     Dosage: 7 MG, DAILY (STOPPED IN FEB OR MAR-2017)
     Route: 048
     Dates: start: 201609, end: 2017
  3. MELATONIN [Concomitant]
     Active Substance: MELATONIN
     Indication: INSOMNIA
     Dosage: 4 MG, 1X/DAY
     Route: 048
     Dates: start: 201609, end: 201705
  4. LYRICA [Suspect]
     Active Substance: PREGABALIN
     Dosage: 100 MG, 2X/DAY
     Route: 048
     Dates: start: 20170410
  5. RISPERIDONE. [Suspect]
     Active Substance: RISPERIDONE
     Indication: AFFECTIVE DISORDER
     Dosage: 7 MG, DAILY
     Route: 048
     Dates: start: 201608, end: 2017
  6. LYRICA [Suspect]
     Active Substance: PREGABALIN
     Dosage: 150 MG, 2X/DAY
     Route: 048
     Dates: start: 201609, end: 20170410
  7. LYRICA [Suspect]
     Active Substance: PREGABALIN
     Indication: ANXIETY
     Dosage: 200 MG, 2X/DAY
     Route: 048
     Dates: start: 201609, end: 20170410
  8. CLONAZEPAM IC [Concomitant]
     Indication: AGITATION
     Dosage: 1 MG, 2X/DAY
     Route: 048
     Dates: start: 20170508, end: 20170516
  9. CLONAZEPAM IC [Concomitant]
     Dosage: 0.5 MG, 1X/DAY
     Route: 048
     Dates: start: 20170516

REACTIONS (6)
  - Condition aggravated [Not Recovered/Not Resolved]
  - Product use issue [Unknown]
  - Galactorrhoea [Recovered/Resolved]
  - Hyperprolactinaemia [Recovered/Resolved]
  - Joint stiffness [Recovered/Resolved]
  - Anxiety [Not Recovered/Not Resolved]

NARRATIVE: CASE EVENT DATE: 201609
